FAERS Safety Report 4557139-X (Version None)
Quarter: 2005Q1

REPORT INFORMATION
  Report Type: 
  Country: None (occurrence: None)
  Receive Date: 20050103
  Receipt Date: 20040914
  Transmission Date: 20050727
  Serious: Yes (Other)
  Sender: FDA-Public Use
  Company Number: 2004UW19269

PATIENT
  Age: 71 Year
  Sex: Female
  Weight: 60.782 kg

DRUGS (1)
  1. CRESTOR [Suspect]
     Indication: BLOOD CHOLESTEROL INCREASED
     Dosage: 10 MG PO
     Route: 048

REACTIONS (4)
  - ASTHENIA [None]
  - FEELING ABNORMAL [None]
  - LYMPHADENOPATHY [None]
  - PAIN IN EXTREMITY [None]
